FAERS Safety Report 6754514-X (Version None)
Quarter: 2010Q2

REPORT INFORMATION
  Report Type: 
  Country: None (occurrence: None)
  Receive Date: 20100603
  Receipt Date: 20100521
  Transmission Date: 20101027
  Serious: Yes (Hospitalization)
  Sender: FDA-Public Use
  Company Number: IT-MYLANLABS-2010S1009042

PATIENT
  Age: 78 Year
  Sex: Male

DRUGS (5)
  1. CEFTRIAXONE [Suspect]
     Indication: HEPATECTOMY
     Route: 042
     Dates: start: 20100518, end: 20100520
  2. CIPROFLOXACIN HCL [Suspect]
     Indication: HEPATECTOMY
     Route: 042
     Dates: start: 20100519, end: 20100520
  3. PERFALGAN [Suspect]
     Indication: HYPERPYREXIA
     Route: 042
     Dates: start: 20100519, end: 20100520
  4. TARGOCID [Concomitant]
     Indication: DRUG USE FOR UNKNOWN INDICATION
     Dates: start: 20100519, end: 20100520
  5. DIFLUCAN [Concomitant]
     Indication: DRUG USE FOR UNKNOWN INDICATION
     Dates: start: 20100519, end: 20100520

REACTIONS (1)
  - ACUTE GENERALISED EXANTHEMATOUS PUSTULOSIS [None]
